FAERS Safety Report 23053418 (Version 1)
Quarter: 2023Q4

REPORT INFORMATION
  Report Type: Spontaneous
  Country: MX (occurrence: MX)
  Receive Date: 20231011
  Receipt Date: 20231011
  Transmission Date: 20240109
  Serious: Yes (Hospitalization, Other)
  Sender: FDA-Public Use
  Company Number: MX-BAXTER-2023BAX032642

PATIENT
  Age: 61 Year
  Sex: Male

DRUGS (2)
  1. DIANEAL [Suspect]
     Active Substance: CALCIUM CHLORIDE\DEXTROSE\MAGNESIUM CHLORIDE\SODIUM CHLORIDE\SODIUM LACTATE
     Indication: Peritoneal dialysis
     Dosage: 2 BAGS PER DAY (VIA APD)
     Route: 033
     Dates: end: 20230926
  2. DIANEAL [Suspect]
     Active Substance: CALCIUM CHLORIDE\DEXTROSE\MAGNESIUM CHLORIDE\SODIUM CHLORIDE\SODIUM LACTATE
     Indication: Peritoneal dialysis
     Dosage: 4 BAGS PER DAY (VIA CAPD)
     Route: 033
     Dates: start: 20230926

REACTIONS (3)
  - Procedural haemorrhage [Unknown]
  - Procedural pain [Unknown]
  - Procedural pain [Recovered/Resolved]

NARRATIVE: CASE EVENT DATE: 20230923
